APPROVED DRUG PRODUCT: LOPERAMIDE HYDROCHLORIDE AND SIMETHICONE
Active Ingredient: LOPERAMIDE HYDROCHLORIDE; SIMETHICONE
Strength: 2MG;125MG
Dosage Form/Route: TABLET;ORAL
Application: A214541 | Product #001
Applicant: GUARDIAN DRUG CO
Approved: May 27, 2021 | RLD: No | RS: No | Type: OTC